FAERS Safety Report 10655293 (Version 1)
Quarter: 2014Q4

REPORT INFORMATION
  Report Type: Spontaneous
  Country: US (occurrence: US)
  Receive Date: 20141216
  Receipt Date: 20141216
  Transmission Date: 20150529
  Serious: Yes (Other)
  Sender: FDA-Public Use
  Company Number: US-TEVA-529143USA

PATIENT
  Age: 39 Year
  Sex: Female
  Weight: 53.57 kg

DRUGS (4)
  1. FLONASE [Concomitant]
     Active Substance: FLUTICASONE PROPIONATE
     Indication: HYPERSENSITIVITY
  2. PARAGARD T380A [Suspect]
     Active Substance: COPPER
     Indication: CONTRACEPTION
     Route: 015
     Dates: start: 20141028, end: 20141210
  3. VITAMIN D [Concomitant]
     Active Substance: CHOLECALCIFEROL
     Indication: PRODUCT USED FOR UNKNOWN INDICATION
  4. CLARITIN [Concomitant]
     Active Substance: LORATADINE
     Indication: HYPERSENSITIVITY

REACTIONS (5)
  - Vulvovaginal pruritus [Unknown]
  - Device dislocation [Recovered/Resolved]
  - Dyspareunia [Unknown]
  - Vulvovaginal discomfort [Unknown]
  - Fungal infection [Unknown]

NARRATIVE: CASE EVENT DATE: 20141028
